FAERS Safety Report 13073633 (Version 2)
Quarter: 2025Q4

REPORT INFORMATION
  Report Type: Spontaneous
  Country: US (occurrence: US)
  Receive Date: 20161229
  Receipt Date: 20251123
  Transmission Date: 20260119
  Serious: No
  Sender: TAKEDA
  Company Number: US-SHIRE-US201620509

PATIENT
  Age: 33 Year
  Sex: Female
  Weight: 64 kg

DRUGS (8)
  1. VYVANSE [Suspect]
     Active Substance: LISDEXAMFETAMINE DIMESYLATE
     Indication: Attention deficit hyperactivity disorder
     Dosage: 30 MILLIGRAM, BID
     Dates: start: 2010, end: 2025
  2. VYVANSE [Suspect]
     Active Substance: LISDEXAMFETAMINE DIMESYLATE
     Dosage: 70 MILLIGRAM, BID
     Dates: start: 2015
  3. LISDEXAMFETAMINE DIMESYLATE [Suspect]
     Active Substance: LISDEXAMFETAMINE DIMESYLATE
     Indication: Attention deficit hyperactivity disorder
     Dosage: 30 MILLIGRAM, BID
  4. LISDEXAMFETAMINE DIMESYLATE [Suspect]
     Active Substance: LISDEXAMFETAMINE DIMESYLATE
     Dosage: 20 MILLIGRAM, BID
  5. DOXYCYCLINE [Concomitant]
     Active Substance: DOXYCYCLINE
     Indication: Lyme disease
     Dosage: 100 MILLIGRAM, BID
     Dates: start: 2014
  6. CEFTIN [Concomitant]
     Active Substance: CEFUROXIME AXETIL
     Indication: Lyme disease
     Dosage: 300 MILLIGRAM, BID
     Dates: start: 2014
  7. MALARONE [Concomitant]
     Active Substance: ATOVAQUONE\PROGUANIL HYDROCHLORIDE
     Indication: Product used for unknown indication
     Dosage: UNK, BID
     Dates: start: 2014
  8. CYMBALTA [Concomitant]
     Active Substance: DULOXETINE HYDROCHLORIDE
     Dosage: UNK

REACTIONS (6)
  - Therapeutic product effect decreased [Unknown]
  - Insurance issue [Unknown]
  - Wrong technique in product usage process [Unknown]
  - Prescribed overdose [Not Recovered/Not Resolved]
  - Inappropriate schedule of product administration [Not Recovered/Not Resolved]
  - Anxiety [Unknown]

NARRATIVE: CASE EVENT DATE: 20150101
